FAERS Safety Report 22368905 (Version 1)
Quarter: 2023Q2

REPORT INFORMATION
  Report Type: Spontaneous
  Country: US (occurrence: US)
  Receive Date: 20230525
  Receipt Date: 20230525
  Transmission Date: 20230721
  Serious: Yes (Other)
  Sender: FDA-Public Use
  Company Number: US-MARINUS PHARMACEUTICALS, INC.-MAR2023000056

PATIENT
  Sex: Female

DRUGS (1)
  1. ZTALMY [Suspect]
     Active Substance: GANAXOLONE
     Indication: CDKL5 deficiency disorder
     Dosage: TITRATION DOSE, TID
     Route: 048
     Dates: start: 202302

REACTIONS (2)
  - Pneumonia [Unknown]
  - Sedation [Unknown]
